FAERS Safety Report 6512283-2 (Version None)
Quarter: 2009Q4

REPORT INFORMATION
  Report Type: 
  Country: None (occurrence: None)
  Receive Date: 20091222
  Receipt Date: 20090713
  Transmission Date: 20100525
  Serious: No
  Sender: FDA-Public Use
  Company Number: US-ASTRAZENECA-2009UW19519

PATIENT
  Age: 91 Year
  Sex: Female
  Weight: 57.2 kg

DRUGS (9)
  1. CRESTOR [Suspect]
     Route: 048
  2. NEXIUM [Concomitant]
     Indication: DYSPEPSIA
  3. SYNTHROID [Concomitant]
  4. COREG [Concomitant]
     Indication: CARDIAC DISORDER
  5. SLO-K [Concomitant]
  6. SPIRONOLACTONE [Concomitant]
  7. ISOSORBIDE [Concomitant]
  8. COUMADIN [Concomitant]
  9. BUMETANIDE [Concomitant]

REACTIONS (1)
  - JOINT SWELLING [None]
